FAERS Safety Report 8462920-0 (Version None)
Quarter: 2012Q2

REPORT INFORMATION
  Report Type: 
  Country: None (occurrence: None)
  Receive Date: 20120625
  Receipt Date: 20111109
  Transmission Date: 20120825
  Serious: Yes (Other)
  Sender: FDA-Public Use
  Company Number: US-ROCHE-1011957

PATIENT
  Age: 85 Year
  Sex: Female

DRUGS (1)
  1. BONIVA [Suspect]
     Indication: PRODUCT USED FOR UNKNOWN INDICATION

REACTIONS (5)
  - LOOSE TOOTH [None]
  - KNEE ARTHROPLASTY [None]
  - IMPLANT SITE PAIN [None]
  - JOINT ARTHROPLASTY [None]
  - HIP ARTHROPLASTY [None]
